FAERS Safety Report 9217066 (Version 1)
Quarter: 2013Q2

REPORT INFORMATION
  Report Type: Spontaneous
  Country: US (occurrence: US)
  Receive Date: 20130408
  Receipt Date: 20130408
  Transmission Date: 20140414
  Serious: No
  Sender: FDA-Public Use
  Company Number: US-BAYER-2013-043786

PATIENT
  Sex: 0

DRUGS (1)
  1. MIDOL EXTENDED RELIEF CAPLET [Suspect]
     Dosage: 4 DF,
     Dates: start: 20130327

REACTIONS (2)
  - Overdose [None]
  - Drug ineffective [None]
